FAERS Safety Report 5516904-2 (Version None)
Quarter: 2007Q4

REPORT INFORMATION
  Report Type: 
  Country: None (occurrence: None)
  Receive Date: 20071114
  Receipt Date: 20070525
  Transmission Date: 20080405
  Serious: No
  Sender: FDA-Public Use
  Company Number: A0652777A

PATIENT
  Age: 40 Year
  Sex: Female

DRUGS (1)
  1. COMMIT [Suspect]
     Dates: start: 20070523, end: 20070523

REACTIONS (1)
  - ORAL DISCOMFORT [None]
